FAERS Safety Report 8853195 (Version 1)
Quarter: 2012Q4

REPORT INFORMATION
  Report Type: 
  Country: US (occurrence: US)
  Receive Date: 20121022
  Receipt Date: 20121022
  Transmission Date: 20130627
  Serious: No
  Sender: FDA-Public Use
  Company Number: US-PFIZER INC-2012259528

PATIENT
  Age: 55 Year
  Sex: Female

DRUGS (4)
  1. DOXYCYCLINE HYCLATE [Suspect]
     Dosage: UNK
  2. ASPIRIN [Suspect]
     Dosage: UNK
  3. FLOXIN [Suspect]
     Dosage: UNK
  4. IODINE [Suspect]
     Route: 042

REACTIONS (2)
  - Drug hypersensitivity [Unknown]
  - Contrast media allergy [Unknown]
